FAERS Safety Report 4359919-2 (Version None)
Quarter: 2004Q2

REPORT INFORMATION
  Report Type: 
  Country: None (occurrence: None)
  Receive Date: 20040518
  Receipt Date: 20031218
  Transmission Date: 20050107
  Serious: Yes (Hospitalization)
  Sender: FDA-Public Use
  Company Number: PHBS2003JP14188

PATIENT
  Age: 53 Year
  Sex: Male
  Weight: 58 kg

DRUGS (10)
  1. DIOVAN [Suspect]
     Indication: HYPERTENSION
     Dosage: 80 MG/DAY
     Route: 048
     Dates: start: 20030901, end: 20031101
  2. URINORM [Concomitant]
     Indication: GOUT
     Dosage: 75 MG/DAY
     Route: 048
     Dates: start: 19861001, end: 20031101
  3. BEZATOL - SLOW RELEASE [Concomitant]
     Indication: HYPERLIPIDAEMIA
     Dosage: 400 MG/DAY
     Route: 048
     Dates: start: 19901001, end: 20031101
  4. OTC DIGESTIVE [Concomitant]
  5. ALCOHOL [Concomitant]
  6. CARVISKEN [Concomitant]
     Indication: HYPERTENSION
     Dosage: 15 MG/DAY
     Route: 048
     Dates: start: 19840101, end: 20030901
  7. TOLEDOMIN [Concomitant]
     Indication: DEPRESSION
     Dosage: 50 MG/DAY
     Route: 048
     Dates: start: 20020301, end: 20031101
  8. ROHYPNOL [Concomitant]
     Indication: INSOMNIA
     Dosage: 1 MG/DAY
     Route: 048
     Dates: start: 20020301, end: 20031101
  9. DEPAS [Concomitant]
     Indication: INSOMNIA
     Dosage: 1 MG/DAY
     Route: 048
     Dates: start: 20020301, end: 20031101
  10. VITAMEDIN CAPSULE [Concomitant]
     Dosage: 3 DF/DAY
     Route: 048
     Dates: start: 20031001, end: 20031101

REACTIONS (5)
  - C-REACTIVE PROTEIN INCREASED [None]
  - LYMPHOCYTE STIMULATION TEST POSITIVE [None]
  - PYREXIA [None]
  - RASH [None]
  - TOXIC SKIN ERUPTION [None]
